FAERS Safety Report 8824803 (Version 1)
Quarter: 2012Q4

REPORT INFORMATION
  Report Type: 
  Country: US (occurrence: US)
  Receive Date: 20121004
  Receipt Date: 20121004
  Transmission Date: 20130627
  Serious: Yes (Hospitalization)
  Sender: FDA-Public Use
  Company Number: US-ELI_LILLY_AND_COMPANY-US201210000259

PATIENT
  Sex: Female

DRUGS (24)
  1. EFFIENT [Suspect]
     Indication: PERCUTANEOUS CORONARY INTERVENTION
     Dosage: 10 mg, qd
     Dates: start: 201110
  2. PRADAXA [Concomitant]
     Dosage: UNK, unknown
  3. KLOR-CON [Concomitant]
     Dosage: UNK, unknown
  4. NEXIUM [Concomitant]
     Dosage: UNK, unknown
  5. NEURONTIN [Concomitant]
     Dosage: UNK, unknown
  6. ISOSORBIDE [Concomitant]
     Dosage: UNK, unknown
  7. VERAPAMIL [Concomitant]
     Dosage: UNK, unknown
  8. LUNESTA [Concomitant]
     Dosage: UNK, unknown
  9. FLUOXETINE [Concomitant]
     Dosage: UNK, unknown
  10. CRESTOR [Concomitant]
     Dosage: UNK, unknown
  11. MAGNESIUM OXIDE [Concomitant]
     Dosage: UNK, unknown
  12. MECLIZINE [Concomitant]
     Dosage: UNK, unknown
  13. REQUIP [Concomitant]
     Dosage: UNK, unknown
  14. METFORMIN [Concomitant]
     Dosage: UNK, unknown
  15. METOLAZONE [Concomitant]
     Dosage: UNK, unknown
  16. SYNTHROID [Concomitant]
     Dosage: UNK, unknown
  17. CELEBREX [Concomitant]
     Dosage: UNK, unknown
  18. LASIX [Concomitant]
     Dosage: UNK, unknown
  19. TRAMADOL [Concomitant]
     Dosage: UNK, unknown
  20. KLONOPIN [Concomitant]
     Dosage: UNK, unknown
  21. PROVIGIL [Concomitant]
     Dosage: UNK, unknown
  22. BYETTA [Concomitant]
     Dosage: UNK, unknown
  23. HUMALOG [Concomitant]
     Dosage: UNK, unknown
  24. LANTUS [Concomitant]
     Dosage: UNK, unknown

REACTIONS (7)
  - Renal failure [Unknown]
  - Chest pain [Unknown]
  - Blood magnesium decreased [Unknown]
  - Anaemia [Unknown]
  - Vision blurred [Unknown]
  - Contusion [Unknown]
  - Off label use [Not Recovered/Not Resolved]
